FAERS Safety Report 14279601 (Version 19)
Quarter: 2020Q4

REPORT INFORMATION
  Report Type: Report from Study
  Country: DE (occurrence: DE)
  Receive Date: 20171212
  Receipt Date: 20201204
  Transmission Date: 20210113
  Serious: Yes (Other)
  Sender: FDA-Public Use
  Company Number: DE-TEVA-2017-DE-831272

PATIENT
  Age: 62 Year
  Sex: Male
  Weight: 91 kg

DRUGS (150)
  1. DEXAMETHASONE. [Suspect]
     Active Substance: DEXAMETHASONE
     Route: 065
     Dates: start: 20170711, end: 20170711
  2. DEXAMETHASONE. [Suspect]
     Active Substance: DEXAMETHASONE
     Route: 065
     Dates: start: 20171114, end: 20171114
  3. DEXAMETHASONE. [Suspect]
     Active Substance: DEXAMETHASONE
     Route: 065
     Dates: start: 20171127, end: 20171127
  4. DEXAMETHASONE. [Suspect]
     Active Substance: DEXAMETHASONE
     Route: 065
     Dates: start: 20171016, end: 20171016
  5. DEXAMETHASONE. [Suspect]
     Active Substance: DEXAMETHASONE
     Route: 065
     Dates: start: 20170613, end: 20170613
  6. DEXAMETHASONE. [Suspect]
     Active Substance: DEXAMETHASONE
     Route: 065
     Dates: start: 20171024, end: 20171024
  7. CARFILZOMIB [Suspect]
     Active Substance: CARFILZOMIB
     Dosage: 27 MG, UNK
     Route: 042
     Dates: start: 20170808, end: 20170809
  8. CARFILZOMIB [Suspect]
     Active Substance: CARFILZOMIB
     Dosage: 20 MG, UNK
     Route: 042
     Dates: start: 20170502, end: 20170503
  9. CARFILZOMIB [Suspect]
     Active Substance: CARFILZOMIB
     Dosage: 56 MG, UNK
     Route: 042
     Dates: start: 20170925, end: 20170926
  10. CARFILZOMIB [Suspect]
     Active Substance: CARFILZOMIB
     Dosage: 27 MG, UNK
     Route: 042
     Dates: start: 20170613, end: 20170614
  11. CARFILZOMIB [Suspect]
     Active Substance: CARFILZOMIB
     Dosage: 56 MG, UNK
     Route: 042
     Dates: start: 20171204
  12. CARFILZOMIB [Suspect]
     Active Substance: CARFILZOMIB
     Route: 042
     Dates: start: 20170801, end: 20170801
  13. CARFILZOMIB [Suspect]
     Active Substance: CARFILZOMIB
     Route: 042
     Dates: start: 20170912, end: 20170912
  14. LENALIDOMIDE [Suspect]
     Active Substance: LENALIDOMIDE
     Dosage: 25 MG, UNK
     Route: 065
     Dates: start: 20170530, end: 20170619
  15. FORTECORTIN [Suspect]
     Active Substance: DEXAMETHASONE
     Dosage: 40 MILLIGRAM DAILY;
     Route: 065
     Dates: start: 20170711, end: 20170711
  16. FORTECORTIN [Suspect]
     Active Substance: DEXAMETHASONE
     Dosage: 20 MILLIGRAM DAILY;
     Route: 065
     Dates: start: 20171030, end: 20171030
  17. DEXAMETHASONE. [Suspect]
     Active Substance: DEXAMETHASONE
     Route: 065
     Dates: start: 20170808, end: 20170808
  18. DEXAMETHASONE. [Suspect]
     Active Substance: DEXAMETHASONE
     Route: 065
     Dates: start: 20170523, end: 20170523
  19. DEXAMETHASONE. [Suspect]
     Active Substance: DEXAMETHASONE
     Route: 065
     Dates: start: 20170509, end: 20170509
  20. DEXAMETHASONE. [Suspect]
     Active Substance: DEXAMETHASONE
     Route: 065
     Dates: start: 20170516, end: 20170516
  21. CARFILZOMIB [Suspect]
     Active Substance: CARFILZOMIB
     Dosage: 27 MG, UNK
     Route: 042
     Dates: start: 20170606, end: 20170607
  22. CARFILZOMIB [Suspect]
     Active Substance: CARFILZOMIB
     Dosage: 20 MG, UNK
     Route: 042
     Dates: start: 20170516, end: 20170517
  23. CARFILZOMIB [Suspect]
     Active Substance: CARFILZOMIB
     Dosage: 27 MG, UNK
     Route: 042
     Dates: start: 20170711, end: 20170712
  24. CARFILZOMIB [Suspect]
     Active Substance: CARFILZOMIB
     Dosage: 56 MG, UNK
     Route: 042
     Dates: start: 20171114, end: 20171114
  25. CARFILZOMIB [Suspect]
     Active Substance: CARFILZOMIB
     Dosage: 56 MG, UNK
     Route: 042
     Dates: start: 20171120, end: 20171120
  26. CARFILZOMIB [Suspect]
     Active Substance: CARFILZOMIB
     Dosage: 20 MG, UNK
     Route: 042
     Dates: start: 20170503, end: 20170503
  27. CARFILZOMIB [Suspect]
     Active Substance: CARFILZOMIB
     Dosage: 56 MG, UNK
     Route: 042
     Dates: start: 20171023, end: 20171024
  28. CARFILZOMIB [Suspect]
     Active Substance: CARFILZOMIB
     Dosage: 56 MG, UNK
     Route: 042
     Dates: start: 20170918, end: 20170919
  29. FORTECORTIN [Suspect]
     Active Substance: DEXAMETHASONE
     Dosage: 20 MILLIGRAM DAILY;
     Route: 065
     Dates: start: 20170919, end: 20170919
  30. FORTECORTIN [Suspect]
     Active Substance: DEXAMETHASONE
     Dosage: 20 MILLIGRAM DAILY;
     Route: 065
     Dates: start: 20171024, end: 20171024
  31. FORTECORTIN [Suspect]
     Active Substance: DEXAMETHASONE
     Dosage: 40 MILLIGRAM DAILY;
     Route: 065
     Dates: start: 20170516, end: 20170516
  32. FORTECORTIN [Suspect]
     Active Substance: DEXAMETHASONE
     Dosage: 40 MILLIGRAM DAILY;
     Route: 065
     Dates: start: 20170704, end: 20170704
  33. FORTECORTIN [Suspect]
     Active Substance: DEXAMETHASONE
     Dosage: 20 MILLIGRAM DAILY;
     Route: 065
     Dates: start: 20171017, end: 20171017
  34. FORTECORTIN [Suspect]
     Active Substance: DEXAMETHASONE
     Route: 065
     Dates: start: 20170502, end: 20170815
  35. ZOMETA [Concomitant]
     Active Substance: ZOLEDRONIC ACID
     Indication: OSTEOLYSIS
     Route: 065
     Dates: start: 20170330
  36. HYDROMORPHONHYDROCHLORID BETA [Concomitant]
     Indication: PAIN
     Dosage: 16 MILLIGRAM DAILY;
     Route: 065
     Dates: start: 2013
  37. DEXAMETHASONE. [Suspect]
     Active Substance: DEXAMETHASONE
     Route: 065
     Dates: start: 20171030, end: 20171030
  38. DEXAMETHASONE. [Suspect]
     Active Substance: DEXAMETHASONE
     Route: 065
     Dates: start: 20171023, end: 20171023
  39. DEXAMETHASONE. [Suspect]
     Active Substance: DEXAMETHASONE
     Route: 065
     Dates: start: 20171003, end: 20171003
  40. DEXAMETHASONE. [Suspect]
     Active Substance: DEXAMETHASONE
     Route: 065
     Dates: start: 20170627, end: 20170627
  41. CARFILZOMIB [Suspect]
     Active Substance: CARFILZOMIB
     Dosage: 27 MG, UNK
     Route: 042
     Dates: start: 20170802, end: 20170802
  42. CARFILZOMIB [Suspect]
     Active Substance: CARFILZOMIB
     Dosage: 56 MG, UNK
     Route: 042
     Dates: start: 20170912, end: 20170912
  43. CARFILZOMIB [Suspect]
     Active Substance: CARFILZOMIB
     Dosage: 56 MG, UNK
     Route: 042
     Dates: start: 20171113, end: 20171113
  44. CARFILZOMIB [Suspect]
     Active Substance: CARFILZOMIB
     Dosage: 56 MG, UNK
     Route: 042
     Dates: start: 20170919, end: 20170919
  45. CARFILZOMIB [Suspect]
     Active Substance: CARFILZOMIB
     Route: 042
     Dates: start: 20170606, end: 20170808
  46. CARFILZOMIB [Suspect]
     Active Substance: CARFILZOMIB
     Route: 042
     Dates: start: 20171114, end: 20171114
  47. FORTECORTIN [Suspect]
     Active Substance: DEXAMETHASONE
     Dosage: 40 MILLIGRAM DAILY;
     Route: 065
     Dates: start: 20170613, end: 20170613
  48. FORTECORTIN [Suspect]
     Active Substance: DEXAMETHASONE
     Dosage: 20 MILLIGRAM DAILY;
     Route: 065
     Dates: start: 20171107, end: 20171107
  49. FORTECORTIN [Suspect]
     Active Substance: DEXAMETHASONE
     Dosage: 20 MILLIGRAM DAILY;
     Route: 065
     Dates: start: 20171002, end: 20171002
  50. FORTECORTIN [Suspect]
     Active Substance: DEXAMETHASONE
     Dosage: 20 MILLIGRAM DAILY;
     Route: 065
     Dates: start: 20171113, end: 20171113
  51. FORTECORTIN [Suspect]
     Active Substance: DEXAMETHASONE
     Dosage: 40 MILLIGRAM DAILY;
     Route: 065
     Dates: start: 20170620, end: 20170620
  52. MIRTAZAPIN [Concomitant]
     Active Substance: MIRTAZAPINE
     Indication: DEPRESSION
     Dosage: 30 MILLIGRAM DAILY;
     Route: 065
     Dates: start: 2013
  53. CLOTRIMAZOLE. [Concomitant]
     Active Substance: CLOTRIMAZOLE
     Indication: PROPHYLAXIS
     Route: 065
     Dates: start: 20170619
  54. DEXAMETHASONE. [Suspect]
     Active Substance: DEXAMETHASONE
     Indication: PLASMA CELL MYELOMA
     Route: 065
     Dates: start: 20171001, end: 20171001
  55. DEXAMETHASONE. [Suspect]
     Active Substance: DEXAMETHASONE
     Route: 065
     Dates: start: 20170502, end: 20170502
  56. DEXAMETHASONE. [Suspect]
     Active Substance: DEXAMETHASONE
     Route: 065
     Dates: start: 20170918, end: 20170918
  57. DEXAMETHASONE. [Suspect]
     Active Substance: DEXAMETHASONE
     Route: 065
     Dates: start: 20170919, end: 20170919
  58. CARFILZOMIB [Suspect]
     Active Substance: CARFILZOMIB
     Dosage: 27 MG, UNK
     Route: 042
     Dates: start: 20170627, end: 20170628
  59. CARFILZOMIB [Suspect]
     Active Substance: CARFILZOMIB
     Dosage: 27 MG, UNK
     Route: 042
     Dates: start: 20170530, end: 20170531
  60. CARFILZOMIB [Suspect]
     Active Substance: CARFILZOMIB
     Dosage: 27 MG, UNK
     Route: 042
     Dates: start: 20170607, end: 20170607
  61. CARFILZOMIB [Suspect]
     Active Substance: CARFILZOMIB
     Dosage: 20 MG, UNK
     Route: 042
     Dates: start: 20170517, end: 20170517
  62. FORTECORTIN [Suspect]
     Active Substance: DEXAMETHASONE
     Dosage: 40 MILLIGRAM DAILY;
     Route: 065
     Dates: start: 20170530, end: 20170530
  63. FORTECORTIN [Suspect]
     Active Substance: DEXAMETHASONE
     Dosage: 20 MILLIGRAM DAILY;
     Route: 065
     Dates: start: 20170926, end: 20170926
  64. FORTECORTIN [Suspect]
     Active Substance: DEXAMETHASONE
     Dosage: 20 MILLIGRAM DAILY;
     Route: 065
     Dates: start: 20171023, end: 20171023
  65. FORTECORTIN [Suspect]
     Active Substance: DEXAMETHASONE
     Dosage: 20 MILLIGRAM DAILY;
     Route: 065
     Dates: start: 20170911, end: 20170911
  66. FORTECORTIN [Suspect]
     Active Substance: DEXAMETHASONE
     Dosage: 40 MILLIGRAM DAILY;
     Route: 065
     Dates: start: 20170808, end: 20170808
  67. FORTECORTIN [Suspect]
     Active Substance: DEXAMETHASONE
     Dosage: 20 MILLIGRAM DAILY;
     Route: 065
     Dates: start: 20171009, end: 20171009
  68. FORTECORTIN [Suspect]
     Active Substance: DEXAMETHASONE
     Dosage: 40 MILLIGRAM DAILY;
     Route: 065
     Dates: start: 20170815, end: 20170815
  69. FORTECORTIN [Suspect]
     Active Substance: DEXAMETHASONE
     Dosage: 20 MILLIGRAM DAILY;
     Route: 065
     Dates: start: 20170925, end: 20170925
  70. CITALOPRAM [Concomitant]
     Active Substance: CITALOPRAM HYDROBROMIDE
     Indication: DEPRESSION
     Dosage: 20 MILLIGRAM DAILY;
     Route: 065
     Dates: start: 2013
  71. DEXAMETHASONE. [Suspect]
     Active Substance: DEXAMETHASONE
     Route: 065
     Dates: start: 20171120, end: 20171120
  72. DEXAMETHASONE. [Suspect]
     Active Substance: DEXAMETHASONE
     Route: 065
     Dates: start: 20170704, end: 20170704
  73. DEXAMETHASONE. [Suspect]
     Active Substance: DEXAMETHASONE
     Route: 065
     Dates: start: 20170530, end: 20170530
  74. DEXAMETHASONE. [Suspect]
     Active Substance: DEXAMETHASONE
     Route: 065
     Dates: start: 20171121, end: 20171121
  75. DEXAMETHASONE. [Suspect]
     Active Substance: DEXAMETHASONE
     Route: 065
     Dates: start: 20171031, end: 20171031
  76. DEXAMETHASONE. [Suspect]
     Active Substance: DEXAMETHASONE
     Route: 065
     Dates: start: 20171002, end: 20171002
  77. CARFILZOMIB [Suspect]
     Active Substance: CARFILZOMIB
     Indication: PLASMA CELL MYELOMA
     Dosage: 27 MG, UNKNOWN
     Route: 042
     Dates: start: 20170712, end: 20170712
  78. CARFILZOMIB [Suspect]
     Active Substance: CARFILZOMIB
     Dosage: 27 MG, UNK
     Route: 042
     Dates: start: 20170704, end: 20170705
  79. CARFILZOMIB [Suspect]
     Active Substance: CARFILZOMIB
     Dosage: 27 MG, UNK
     Route: 042
     Dates: start: 20170531, end: 20170531
  80. CARFILZOMIB [Suspect]
     Active Substance: CARFILZOMIB
     Dosage: 56 MG, UNK
     Route: 042
     Dates: start: 20171017, end: 20171017
  81. CARFILZOMIB [Suspect]
     Active Substance: CARFILZOMIB
     Dosage: 20 MG, UNK
     Route: 042
     Dates: start: 20170509, end: 20170510
  82. CARFILZOMIB [Suspect]
     Active Substance: CARFILZOMIB
     Dosage: 56 MG, UNK
     Route: 042
     Dates: start: 20171121, end: 20171121
  83. FORTECORTIN [Suspect]
     Active Substance: DEXAMETHASONE
     Dosage: 20 MILLIGRAM DAILY;
     Route: 065
     Dates: start: 20171003, end: 20171003
  84. FORTECORTIN [Suspect]
     Active Substance: DEXAMETHASONE
     Dosage: 20 MILLIGRAM DAILY;
     Route: 065
     Dates: start: 20171121, end: 20171121
  85. FORTECORTIN [Suspect]
     Active Substance: DEXAMETHASONE
     Dosage: 40 MILLIGRAM DAILY;
     Route: 065
     Dates: start: 20170509, end: 20170509
  86. FORTECORTIN [Suspect]
     Active Substance: DEXAMETHASONE
     Dosage: 20 MILLIGRAM DAILY;
     Route: 065
     Dates: start: 20171128, end: 20171128
  87. FORTECORTIN [Suspect]
     Active Substance: DEXAMETHASONE
     Dosage: 20 MILLIGRAM DAILY;
     Route: 065
     Dates: start: 20171106, end: 20171106
  88. FORTECORTIN [Suspect]
     Active Substance: DEXAMETHASONE
     Dosage: 20 MILLIGRAM DAILY;
     Route: 065
     Dates: start: 20171127, end: 20171127
  89. DEXAMETHASONE. [Suspect]
     Active Substance: DEXAMETHASONE
     Route: 065
     Dates: start: 20171009, end: 20171009
  90. DEXAMETHASONE. [Suspect]
     Active Substance: DEXAMETHASONE
     Route: 065
     Dates: start: 20171017, end: 20171017
  91. DEXAMETHASONE. [Suspect]
     Active Substance: DEXAMETHASONE
     Route: 065
     Dates: start: 20170911, end: 20170911
  92. DEXAMETHASONE. [Suspect]
     Active Substance: DEXAMETHASONE
     Route: 065
     Dates: start: 20170606, end: 20170606
  93. DEXAMETHASONE. [Suspect]
     Active Substance: DEXAMETHASONE
     Route: 065
     Dates: start: 20171113, end: 20171113
  94. DEXAMETHASONE. [Suspect]
     Active Substance: DEXAMETHASONE
     Route: 065
     Dates: start: 20170620, end: 20170620
  95. DEXAMETHASONE. [Suspect]
     Active Substance: DEXAMETHASONE
     Route: 065
     Dates: start: 20170718, end: 20170718
  96. CARFILZOMIB [Suspect]
     Active Substance: CARFILZOMIB
     Dosage: 56 MG, UNK
     Route: 042
     Dates: start: 20171009, end: 20171010
  97. CARFILZOMIB [Suspect]
     Active Substance: CARFILZOMIB
     Dosage: 27 MG, UNK
     Route: 042
     Dates: start: 20170705, end: 20170705
  98. CARFILZOMIB [Suspect]
     Active Substance: CARFILZOMIB
     Dosage: 27 MG, UNK
     Route: 042
     Dates: start: 20170726, end: 20170726
  99. CARFILZOMIB [Suspect]
     Active Substance: CARFILZOMIB
     Dosage: 56 MG, UNK
     Route: 042
     Dates: start: 20171106, end: 20171107
  100. CARFILZOMIB [Suspect]
     Active Substance: CARFILZOMIB
     Route: 042
     Dates: start: 20170606, end: 20170606
  101. LENALIDOMIDE [Suspect]
     Active Substance: LENALIDOMIDE
     Indication: PLASMA CELL MYELOMA
     Dosage: 25 MG
     Route: 048
     Dates: start: 20170725, end: 20170814
  102. FORTECORTIN [Suspect]
     Active Substance: DEXAMETHASONE
     Dosage: 20 MILLIGRAM DAILY;
     Route: 065
     Dates: start: 20171010, end: 20171010
  103. FORTECORTIN [Suspect]
     Active Substance: DEXAMETHASONE
     Dosage: 40 MILLIGRAM DAILY;
     Route: 065
     Dates: start: 20170606, end: 20170606
  104. FORTECORTIN [Suspect]
     Active Substance: DEXAMETHASONE
     Dosage: 20 MILLIGRAM DAILY;
     Route: 065
     Dates: start: 20170918, end: 20170918
  105. FORTECORTIN [Suspect]
     Active Substance: DEXAMETHASONE
     Dosage: 20 MILLIGRAM DAILY;
     Route: 065
     Dates: start: 20171016, end: 20171016
  106. FORTECORTIN [Suspect]
     Active Substance: DEXAMETHASONE
     Dosage: 20 MILLIGRAM DAILY;
     Route: 065
     Dates: start: 20170912, end: 20170912
  107. FORTECORTIN [Suspect]
     Active Substance: DEXAMETHASONE
     Route: 065
     Dates: start: 20170911, end: 20170911
  108. FORTECORTIN [Suspect]
     Active Substance: DEXAMETHASONE
     Route: 065
     Dates: start: 20180115, end: 20180116
  109. CANESTEN [Concomitant]
     Active Substance: CLOTRIMAZOLE
     Indication: PROPHYLAXIS
     Dosage: 99 UNKNOWN
     Route: 065
     Dates: start: 20170719
  110. DEXAMETHASONE. [Suspect]
     Active Substance: DEXAMETHASONE
     Route: 065
     Dates: start: 20170815, end: 20170815
  111. DEXAMETHASONE. [Suspect]
     Active Substance: DEXAMETHASONE
     Route: 065
     Dates: start: 20171107, end: 20171107
  112. DEXAMETHASONE. [Suspect]
     Active Substance: DEXAMETHASONE
     Route: 065
     Dates: start: 20170725, end: 20170725
  113. DEXAMETHASONE. [Suspect]
     Active Substance: DEXAMETHASONE
     Route: 065
     Dates: start: 20170912, end: 20170912
  114. DEXAMETHASONE. [Suspect]
     Active Substance: DEXAMETHASONE
     Route: 065
     Dates: start: 20171106, end: 20171106
  115. DEXAMETHASONE. [Suspect]
     Active Substance: DEXAMETHASONE
     Route: 065
     Dates: start: 20171010, end: 20171010
  116. DEXAMETHASONE. [Suspect]
     Active Substance: DEXAMETHASONE
     Route: 065
     Dates: start: 20170925, end: 20170925
  117. CARFILZOMIB [Suspect]
     Active Substance: CARFILZOMIB
     Dosage: 27 MG, UNK
     Route: 042
     Dates: start: 20170809, end: 20170809
  118. CARFILZOMIB [Suspect]
     Active Substance: CARFILZOMIB
     Dosage: 56 MG, UNK
     Route: 042
     Dates: start: 20170926, end: 20170926
  119. CARFILZOMIB [Suspect]
     Active Substance: CARFILZOMIB
     Dosage: 20 MG, UNK
     Route: 042
     Dates: start: 20170510, end: 20170510
  120. CARFILZOMIB [Suspect]
     Active Substance: CARFILZOMIB
     Dosage: 27 MG, UNK
     Route: 042
     Dates: start: 20170614, end: 20170614
  121. CARFILZOMIB [Suspect]
     Active Substance: CARFILZOMIB
     Dosage: 56 MG, UNK
     Route: 042
     Dates: start: 20171024, end: 20171024
  122. CARFILZOMIB [Suspect]
     Active Substance: CARFILZOMIB
     Route: 042
     Dates: start: 20170919, end: 20170919
  123. FORTECORTIN [Suspect]
     Active Substance: DEXAMETHASONE
     Dosage: 40 MILLIGRAM DAILY;
     Route: 065
     Dates: start: 20170627, end: 20170627
  124. FORTECORTIN [Suspect]
     Active Substance: DEXAMETHASONE
     Dosage: 40 MILLIGRAM DAILY;
     Route: 065
     Dates: start: 20170718, end: 20170718
  125. FORTECORTIN [Suspect]
     Active Substance: DEXAMETHASONE
     Dosage: 20 MILLIGRAM DAILY;
     Route: 065
     Dates: start: 20171114, end: 20171114
  126. FORTECORTIN [Suspect]
     Active Substance: DEXAMETHASONE
     Dosage: 20 MILLIGRAM DAILY;
     Route: 065
     Dates: start: 20171120, end: 20171120
  127. FORTECORTIN [Suspect]
     Active Substance: DEXAMETHASONE
     Route: 065
     Dates: start: 20171106, end: 20171106
  128. FORTECORTIN [Suspect]
     Active Substance: DEXAMETHASONE
     Route: 065
     Dates: start: 20171120, end: 20171120
  129. HYDROMORPHONHYDROCHLORID BETA [Concomitant]
     Dates: start: 2013
  130. PANTOPRAZOL [Concomitant]
     Active Substance: PANTOPRAZOLE SODIUM
     Indication: PROPHYLAXIS
     Route: 065
     Dates: start: 2013
  131. DEXAMETHASONE. [Suspect]
     Active Substance: DEXAMETHASONE
     Route: 065
     Dates: start: 20171128, end: 20171128
  132. DEXAMETHASONE. [Suspect]
     Active Substance: DEXAMETHASONE
     Route: 065
     Dates: start: 20170926, end: 20170926
  133. CARFILZOMIB [Suspect]
     Active Substance: CARFILZOMIB
     Dosage: 56 MG, UNK
     Route: 042
     Dates: start: 20171016, end: 20171017
  134. CARFILZOMIB [Suspect]
     Active Substance: CARFILZOMIB
     Dosage: 56 MG, UNK
     Route: 042
     Dates: start: 20170911, end: 20170912
  135. CARFILZOMIB [Suspect]
     Active Substance: CARFILZOMIB
     Dosage: 56 MG, UNK
     Route: 042
     Dates: start: 20171107, end: 20171107
  136. CARFILZOMIB [Suspect]
     Active Substance: CARFILZOMIB
     Dosage: 27 MG, UNK
     Route: 042
     Dates: start: 20170725, end: 20170726
  137. CARFILZOMIB [Suspect]
     Active Substance: CARFILZOMIB
     Dosage: 56 MG, UNK
     Route: 042
     Dates: start: 20171010, end: 20171010
  138. CARFILZOMIB [Suspect]
     Active Substance: CARFILZOMIB
     Dosage: 27 MG, UNK
     Route: 042
     Dates: start: 20170801, end: 20170802
  139. CARFILZOMIB [Suspect]
     Active Substance: CARFILZOMIB
     Dosage: 27 MG, UNK
     Route: 042
     Dates: start: 20170628, end: 20170628
  140. CARFILZOMIB [Suspect]
     Active Substance: CARFILZOMIB
     Route: 042
     Dates: start: 20171211, end: 20171212
  141. CARFILZOMIB [Suspect]
     Active Substance: CARFILZOMIB
     Route: 042
     Dates: start: 20170502, end: 20170517
  142. CARFILZOMIB [Suspect]
     Active Substance: CARFILZOMIB
     Route: 065
     Dates: start: 20171017, end: 20171017
  143. LENALIDOMIDE [Suspect]
     Active Substance: LENALIDOMIDE
     Dosage: 25 MG, UNK
     Route: 065
     Dates: start: 20170627, end: 20170717
  144. LENALIDOMIDE [Suspect]
     Active Substance: LENALIDOMIDE
     Dosage: 25 MG, UNK
     Route: 048
     Dates: start: 20170502, end: 20170522
  145. FORTECORTIN [Suspect]
     Active Substance: DEXAMETHASONE
     Indication: PLASMA CELL MYELOMA
     Dosage: 40 MILLIGRAM DAILY;
     Route: 065
     Dates: start: 20170523, end: 20170523
  146. FORTECORTIN [Suspect]
     Active Substance: DEXAMETHASONE
     Dosage: 40 MILLIGRAM DAILY;
     Route: 065
     Dates: start: 20170502, end: 20170502
  147. FORTECORTIN [Suspect]
     Active Substance: DEXAMETHASONE
     Dosage: 20 MILLIGRAM DAILY;
     Route: 065
     Dates: start: 20171031, end: 20171031
  148. FORTECORTIN [Suspect]
     Active Substance: DEXAMETHASONE
     Dosage: 40 MILLIGRAM DAILY;
     Route: 065
     Dates: start: 20170801, end: 20170801
  149. FORTECORTIN [Suspect]
     Active Substance: DEXAMETHASONE
     Dosage: 40 MILLIGRAM DAILY;
     Route: 065
     Dates: start: 20170725, end: 20170725
  150. INNOHEP [Concomitant]
     Active Substance: TINZAPARIN SODIUM
     Indication: PROPHYLAXIS
     Dosage: .9 ML DAILY;
     Route: 065
     Dates: start: 20170615

REACTIONS (6)
  - Neutropenia [Recovered/Resolved]
  - Lymphopenia [Recovered/Resolved]
  - Neutropenia [Recovered/Resolved]
  - Leukopenia [Recovered/Resolved]
  - Leukopenia [Recovered/Resolved]
  - Thrombocytopenia [Recovered/Resolved]

NARRATIVE: CASE EVENT DATE: 20171009
